FAERS Safety Report 9112145 (Version 1)
Quarter: 2013Q1

REPORT INFORMATION
  Report Type: Spontaneous
  Country: US (occurrence: US)
  Receive Date: 20130219
  Receipt Date: 20130219
  Transmission Date: 20140127
  Serious: No
  Sender: FDA-Public Use
  Company Number: US-BRISTOL-MYERS SQUIBB COMPANY-16696072

PATIENT
  Sex: Female

DRUGS (2)
  1. ORENCIA [Suspect]
     Dosage: 4 INJ
     Route: 058
  2. METHOTREXATE [Concomitant]

REACTIONS (3)
  - Weight increased [Recovering/Resolving]
  - Dysgeusia [Recovered/Resolved]
  - Nausea [Recovered/Resolved]
